FAERS Safety Report 4956763-X (Version None)
Quarter: 2006Q1

REPORT INFORMATION
  Report Type: 
  Country: None (occurrence: None)
  Receive Date: 20060127
  Receipt Date: 20050608
  Transmission Date: 20060701
  Serious: Yes (Hospitalization)
  Sender: FDA-Public Use
  Company Number: 05-06-1033

PATIENT
  Age: 42 Year
  Sex: Male

DRUGS (3)
  1. CLOZAPINE [Suspect]
     Dosage: 400 MG HS ORAL
     Route: 048
     Dates: start: 19980901, end: 20050301
  2. PAROXETINE (PAROXETINE) [Concomitant]
  3. CLONAZEPAM [Concomitant]

REACTIONS (2)
  - DROOLING [None]
  - SUICIDAL IDEATION [None]
